FAERS Safety Report 6232055-6 (Version None)
Quarter: 2009Q2

REPORT INFORMATION
  Report Type: 
  Country: None (occurrence: None)
  Receive Date: 20090616
  Receipt Date: 20090604
  Transmission Date: 20091009
  Serious: Yes (Other)
  Sender: FDA-Public Use
  Company Number: BR-WYE-H09633509

PATIENT
  Sex: Male
  Weight: 92 kg

DRUGS (2)
  1. EFFEXOR XR [Suspect]
     Indication: PANIC DISORDER
     Route: 048
     Dates: start: 20010101
  2. EFFEXOR XR [Suspect]
     Dosage: TRYING TO DISCONTINUE TREATMENT UNKNOWN DOSE
     Route: 048

REACTIONS (2)
  - DRUG WITHDRAWAL SYNDROME [None]
  - PETIT MAL EPILEPSY [None]
